FAERS Safety Report 14522690 (Version 1)
Quarter: 2018Q1

REPORT INFORMATION
  Report Type: Spontaneous
  Country: US (occurrence: US)
  Receive Date: 20180212
  Receipt Date: 20180212
  Transmission Date: 20180509
  Serious: No
  Sender: FDA-Public Use
  Company Number: US-ACTELION-A-NJ2018-167490

PATIENT
  Age: 62 Year
  Sex: Female
  Weight: 99.77 kg

DRUGS (1)
  1. OPSUMIT [Suspect]
     Active Substance: MACITENTAN
     Indication: PULMONARY ARTERIAL HYPERTENSION
     Dosage: 10 MG, UNK
     Route: 048

REACTIONS (5)
  - Anxiety [Unknown]
  - Headache [Unknown]
  - Nausea [Unknown]
  - Balance disorder [Unknown]
  - Nervousness [Unknown]
